FAERS Safety Report 8401056-1 (Version None)
Quarter: 2012Q2

REPORT INFORMATION
  Report Type: 
  Country: None (occurrence: None)
  Receive Date: 20120525
  Receipt Date: 20120515
  Transmission Date: 20120825
  Serious: Yes (Other)
  Sender: FDA-Public Use
  Company Number: B0802912A

PATIENT
  Age: 68 Year
  Sex: Female

DRUGS (25)
  1. PAXIL [Suspect]
     Indication: PRODUCT USED FOR UNKNOWN INDICATION
     Dosage: UNK
  2. GABAPENTIN [Concomitant]
  3. SUXAMETHONIUM [Concomitant]
  4. LEVOTHYROXINE SODIUM [Concomitant]
  5. MULTI-VITAMIN [Concomitant]
  6. TIAGABINE HYDROCHLORIDE [Concomitant]
  7. SENNA-MINT WAF [Concomitant]
  8. CALCIUM [Concomitant]
  9. MIDAZOLAM [Concomitant]
  10. HYDROMORPHONE HCL [Concomitant]
  11. FENTANYL [Suspect]
     Indication: ANAESTHESIA
     Dosage: 100 UG, UNK
  12. LISINOPRIL [Concomitant]
  13. PROPOFOL [Concomitant]
  14. OXYCODONE HCL [Concomitant]
  15. DULOXETINE HYDROCHLORIDE [Suspect]
     Indication: PRODUCT USED FOR UNKNOWN INDICATION
     Dosage: UNK
  16. CLONAZEPAM [Concomitant]
  17. OXYGEN [Concomitant]
  18. TRIAMTERENE AND HYDROCHLOROTHIAZIDE [Concomitant]
  19. ALENDRONATE SODIUM [Concomitant]
  20. ONDANSETRON HYDROCHLORIDE [Suspect]
     Indication: PRODUCT USED FOR UNKNOWN INDICATION
     Dosage: 4 MG, UNK
  21. WELLBUTRIN [Suspect]
     Indication: PRODUCT USED FOR UNKNOWN INDICATION
     Dosage: UNK
  22. OMEPRAZOLE [Concomitant]
  23. FLUDROCORTISONE ACETATE [Concomitant]
  24. DESFLURANE [Concomitant]
  25. ATORVASTATIN CALCIUM [Concomitant]

REACTIONS (3)
  - SEROTONIN SYNDROME [None]
  - APNOEIC ATTACK [None]
  - UNRESPONSIVE TO STIMULI [None]
